FAERS Safety Report 21044376 (Version 1)
Quarter: 2022Q3

REPORT INFORMATION
  Report Type: Spontaneous
  Country: US (occurrence: None)
  Receive Date: 20220704
  Receipt Date: 20220704
  Transmission Date: 20221026
  Serious: Yes (Disabling, Other)
  Sender: FDA-Public Use
  Company Number: None

PATIENT
  Age: 76 Year
  Sex: Female
  Weight: 56.25 kg

DRUGS (3)
  1. XIAFLEX [Suspect]
     Active Substance: COLLAGENASE CLOSTRIDIUM HISTOLYTICUM
     Indication: Dupuytren^s contracture
     Dates: start: 20200813
  2. Vit-12 [Concomitant]
  3. VIT-C [Concomitant]

REACTIONS (2)
  - Post procedural complication [None]
  - Hand deformity [None]

NARRATIVE: CASE EVENT DATE: 20200813
